FAERS Safety Report 15476213 (Version 2)
Quarter: 2018Q4

REPORT INFORMATION
  Report Type: Report from Study
  Country: BR (occurrence: BR)
  Receive Date: 20181009
  Receipt Date: 20181016
  Transmission Date: 20190205
  Serious: Yes (Other)
  Sender: FDA-Public Use
  Company Number: PHHY2018BR116577

PATIENT
  Sex: Female
  Weight: 51 kg

DRUGS (1)
  1. DIOVAN HCT [Suspect]
     Active Substance: HYDROCHLOROTHIAZIDE\VALSARTAN
     Indication: HYPERTENSION
     Dosage: 1 DF, TID (START OF TREATMENT 12 YEARS AGO)
     Route: 048

REACTIONS (5)
  - Osteoporosis [Not Recovered/Not Resolved]
  - Visual impairment [Recovering/Resolving]
  - Menopause [Unknown]
  - Blood pressure increased [Unknown]
  - Drug dependence [Unknown]
